FAERS Safety Report 7763575-0 (Version None)
Quarter: 2011Q3

REPORT INFORMATION
  Report Type: 
  Country: None (occurrence: None)
  Receive Date: 20110920
  Receipt Date: 20110912
  Transmission Date: 20111222
  Serious: Yes (Other)
  Sender: FDA-Public Use
  Company Number: JP-SANTEN INC.-INC-11-000035

PATIENT
  Age: 48 Year
  Sex: Male

DRUGS (2)
  1. LEVOFLOXACIN [Suspect]
     Indication: HORDEOLUM
     Route: 048
     Dates: start: 20110909, end: 20110909
  2. LEVOFLOXACIN [Suspect]
     Indication: HORDEOLUM
     Route: 047
     Dates: start: 20110909, end: 20110909

REACTIONS (1)
  - URTICARIA [None]
